FAERS Safety Report 18011102 (Version 2)
Quarter: 2020Q3

REPORT INFORMATION
  Report Type: Report from Study
  Country: MX (occurrence: MX)
  Receive Date: 20200711
  Receipt Date: 20200826
  Transmission Date: 20201103
  Serious: Yes (Other)
  Sender: FDA-Public Use
  Company Number: NVSC2020MX194684

PATIENT
  Age: 58 Year
  Sex: Female
  Weight: 94 kg

DRUGS (5)
  1. EXFORGE HCT [Suspect]
     Active Substance: AMLODIPINE BESYLATE\HYDROCHLOROTHIAZIDE\VALSARTAN
     Dosage: UNK, QD
     Route: 048
     Dates: end: 20200630
  2. XIGDUO XR [Concomitant]
     Active Substance: DAPAGLIFLOZIN PROPANEDIOL\METFORMIN HYDROCHLORIDE
     Indication: DIABETES MELLITUS
     Dosage: 1 DF, QD
     Route: 048
  3. ENTRESTO [Suspect]
     Active Substance: SACUBITRIL\VALSARTAN
     Indication: PRODUCT USED FOR UNKNOWN INDICATION
     Dosage: 100 MG, QD
     Route: 065
  4. LANTUS [Concomitant]
     Active Substance: INSULIN GLARGINE
     Indication: DIABETES MELLITUS
     Dosage: 36 DF, QD
     Route: 058
     Dates: start: 20200413
  5. EXFORGE HCT [Suspect]
     Active Substance: AMLODIPINE BESYLATE\HYDROCHLOROTHIAZIDE\VALSARTAN
     Indication: PRODUCT USED FOR UNKNOWN INDICATION
     Dosage: 1 DF, QD
     Route: 048
     Dates: start: 20200513

REACTIONS (15)
  - Eye swelling [Unknown]
  - Blood pressure decreased [Unknown]
  - Swelling of eyelid [Not Recovered/Not Resolved]
  - Ankle fracture [Unknown]
  - Incorrect dose administered [Unknown]
  - Fall [Unknown]
  - Contraindicated product administered [Unknown]
  - Blood pressure increased [Unknown]
  - Pain [Unknown]
  - Peripheral swelling [Unknown]
  - Lower limb fracture [Unknown]
  - Angiopathy [Unknown]
  - Mouth swelling [Not Recovered/Not Resolved]
  - Burning sensation [Unknown]
  - Drug hypersensitivity [Unknown]

NARRATIVE: CASE EVENT DATE: 20200531
